FAERS Safety Report 10540694 (Version 1)
Quarter: 2014Q4

REPORT INFORMATION
  Report Type: Spontaneous
  Country: US (occurrence: None)
  Receive Date: 20141009
  Receipt Date: 20141009
  Transmission Date: 20150529
  Serious: Yes (Other)
  Sender: FDA-Public Use
  Company Number: 1000050921

PATIENT
  Age: 71 Year
  Sex: Male

DRUGS (2)
  1. PERCOCET (ACETAMINOPHEN, OXYCODONE) (ACETAMINOPHEN, OXYCODONE) [Concomitant]
  2. ESCITALOPRAM [Suspect]
     Active Substance: ESCITALOPRAM OXALATE
     Indication: DEPRESSION
     Route: 048
     Dates: start: 2012

REACTIONS (2)
  - Suicidal ideation [None]
  - Drug ineffective [None]

NARRATIVE: CASE EVENT DATE: 2012
